FAERS Safety Report 23973683 (Version 1)
Quarter: 2024Q2

REPORT INFORMATION
  Report Type: Spontaneous
  Country: US (occurrence: None)
  Receive Date: 20240613
  Receipt Date: 20240613
  Transmission Date: 20240716
  Serious: No
  Sender: FDA-Public Use
  Company Number: US-MDD US Operations-MDD202403-001061

PATIENT
  Age: 65 Year
  Sex: Male
  Weight: 88.45 kg

DRUGS (5)
  1. APOKYN [Suspect]
     Active Substance: APOMORPHINE HYDROCHLORIDE
     Indication: Parkinson^s disease
     Route: 058
     Dates: start: 20240220
  2. RYTARY [Concomitant]
     Active Substance: CARBIDOPA\LEVODOPA
     Dosage: NOT PROVIDED
  3. AMANTADINE [Concomitant]
     Active Substance: AMANTADINE
     Dosage: NOT PROVIDED
  4. Asolt [Concomitant]
     Dosage: NOT PROVIDED
  5. GABAPENTIN [Concomitant]
     Active Substance: GABAPENTIN
     Dosage: NOT PROVIDED

REACTIONS (1)
  - Injection site bruising [Recovered/Resolved]

NARRATIVE: CASE EVENT DATE: 20240101
